FAERS Safety Report 5063421-2 (Version None)
Quarter: 2006Q3

REPORT INFORMATION
  Report Type: 
  Country: None (occurrence: None)
  Receive Date: 20060727
  Receipt Date: 20060719
  Transmission Date: 20061208
  Serious: Yes (Disabling, Other)
  Sender: FDA-Public Use
  Company Number: US-AVENTIS-200616077US

PATIENT
  Sex: Female

DRUGS (1)
  1. LOVENOX [Suspect]
     Dosage: DOSE: UNK

REACTIONS (14)
  - ACTIVATED PARTIAL THROMBOPLASTIN TIME PROLONGED [None]
  - BLINDNESS [None]
  - CEREBRAL PALSY [None]
  - CONVULSION [None]
  - DEAFNESS BILATERAL [None]
  - DRUG EXPOSURE DURING PREGNANCY [None]
  - HYPOXIA [None]
  - INTRAVENTRICULAR HAEMORRHAGE [None]
  - MENTAL RETARDATION SEVERITY UNSPECIFIED [None]
  - MULTIPLE CONGENITAL ABNORMALITIES [None]
  - NERVOUS SYSTEM DISORDER [None]
  - NEUROPATHY [None]
  - PROTHROMBIN TIME ABNORMAL [None]
  - THROMBOCYTOPENIA [None]
